FAERS Safety Report 4599280-1 (Version None)
Quarter: 2005Q1

REPORT INFORMATION
  Report Type: 
  Country: None (occurrence: None)
  Receive Date: 20050302
  Receipt Date: 20050217
  Transmission Date: 20050727
  Serious: No
  Sender: FDA-Public Use
  Company Number: 02100-JPN-04-0356

PATIENT
  Age: 83 Year
  Sex: Male

DRUGS (3)
  1. CILOSTAZOL [Suspect]
     Indication: ARTERIAL OCCLUSIVE DISEASE
     Dosage: 100 MG ORAL
     Route: 048
     Dates: start: 20030207, end: 20050106
  2. FUROSEMIDE [Suspect]
     Indication: CARDIAC FAILURE CHRONIC
     Dosage: 20 MG ORAL
     Route: 048
     Dates: start: 20030207, end: 20050106
  3. WARFARIN POTASSIUM [Concomitant]

REACTIONS (6)
  - BLOOD GLUCOSE INCREASED [None]
  - BLOOD LACTATE DEHYDROGENASE INCREASED [None]
  - DERMATITIS EXFOLIATIVE [None]
  - HYPERKERATOSIS [None]
  - LYMPHOCYTE STIMULATION TEST POSITIVE [None]
  - WHITE BLOOD CELL COUNT INCREASED [None]
